FAERS Safety Report 4300786-0 (Version None)
Quarter: 2004Q1

REPORT INFORMATION
  Report Type: 
  Country: None (occurrence: None)
  Receive Date: 20040218
  Receipt Date: 20031129
  Transmission Date: 20041129
  Serious: No
  Sender: FDA-Public Use
  Company Number: 2003-09-0104

PATIENT
  Age: 48 Year
  Sex: Male
  Weight: 77.1115 kg

DRUGS (3)
  1. PEG-INTRON [Suspect]
     Indication: HEPATITIS C
     Dosage: 50 MCG SUBCUTANEOUS
     Route: 058
     Dates: start: 20020201
  2. MILK THISTLE FRUIT [Concomitant]
  3. ALPHA LIPOIC ACID (ANTIOXIDANT) [Concomitant]

REACTIONS (3)
  - CHILLS [None]
  - HEADACHE [None]
  - INFLUENZA LIKE ILLNESS [None]
